FAERS Safety Report 4951982-0 (Version None)
Quarter: 2006Q1

REPORT INFORMATION
  Report Type: 
  Country: None (occurrence: None)
  Receive Date: 20060323
  Receipt Date: 20060209
  Transmission Date: 20060701
  Serious: Yes (Hospitalization)
  Sender: FDA-Public Use
  Company Number: FR-ROCHE-435906

PATIENT
  Age: 72 Year
  Sex: Male

DRUGS (10)
  1. RIVOTRIL [Suspect]
     Indication: DRUG USE FOR UNKNOWN INDICATION
     Route: 042
     Dates: start: 20051215, end: 20051215
  2. FOSPHENYTOIN SODIUM [Suspect]
     Route: 042
     Dates: start: 20051215, end: 20051215
  3. HYPNOVEL [Concomitant]
     Indication: DRUG USE FOR UNKNOWN INDICATION
     Route: 042
  4. FENTANYL [Concomitant]
     Indication: DRUG USE FOR UNKNOWN INDICATION
     Route: 042
  5. TAZOCILLINE [Concomitant]
     Indication: DRUG USE FOR UNKNOWN INDICATION
     Route: 042
  6. CIFLOX [Concomitant]
     Indication: DRUG USE FOR UNKNOWN INDICATION
     Route: 042
  7. NORADRENALINE [Concomitant]
  8. NEXIUM [Concomitant]
  9. HYDROCORTISONE HEMISUCCINATE [Concomitant]
  10. ACTRAPID [Concomitant]

REACTIONS (2)
  - HYPOTENSION [None]
  - SUPRAVENTRICULAR EXTRASYSTOLES [None]
